FAERS Safety Report 7056314-2 (Version None)
Quarter: 2010Q4

REPORT INFORMATION
  Report Type: 
  Country: None (occurrence: None)
  Receive Date: 20101021
  Receipt Date: 20101018
  Transmission Date: 20110411
  Serious: Yes (Hospitalization)
  Sender: FDA-Public Use
  Company Number: US-WYE-H18216610

PATIENT

DRUGS (1)
  1. EFFEXOR XR [Suspect]
     Indication: NEURALGIA
     Dosage: UNKNOWN

REACTIONS (1)
  - HOSPITALISATION [None]
